FAERS Safety Report 6032301-8 (Version None)
Quarter: 2008Q4

REPORT INFORMATION
  Report Type: 
  Country: None (occurrence: None)
  Receive Date: 20081222
  Receipt Date: 20081107
  Transmission Date: 20090506
  Serious: No
  Sender: FDA-Public Use
  Company Number: US-WYE-H06803408

PATIENT
  Age: 62 Year
  Sex: Male

DRUGS (2)
  1. PRISTIQ [Suspect]
     Dosage: 50 MG 1X PER 1 DAY
     Dates: start: 20080702, end: 20081103
  2. CONCERTA [Concomitant]

REACTIONS (1)
  - POLLAKIURIA [None]
